FAERS Safety Report 5972822-7 (Version None)
Quarter: 2008Q4

REPORT INFORMATION
  Report Type: 
  Country: None (occurrence: None)
  Receive Date: 20081201
  Receipt Date: 20081119
  Transmission Date: 20090506
  Serious: Yes (Hospitalization)
  Sender: FDA-Public Use
  Company Number: US-BAYER-200839577NA

PATIENT
  Age: 53 Year
  Sex: Male

DRUGS (12)
  1. CAMPATH [Suspect]
     Indication: CHRONIC LYMPHOCYTIC LEUKAEMIA
     Dosage: TOTAL DAILY DOSE: 30 MG
     Route: 058
     Dates: start: 20080905, end: 20080915
  2. CAMPATH [Suspect]
     Dosage: TOTAL DAILY DOSE: 30 MG
     Route: 058
     Dates: start: 20081024, end: 20081024
  3. CAMPATH [Suspect]
     Dosage: TOTAL DAILY DOSE: 30 MG
     Route: 058
     Dates: start: 20080630, end: 20080801
  4. PREDNISONE TAB [Concomitant]
     Dosage: TOTAL DAILY DOSE: 20 MG
     Route: 048
  5. FAMVIR [Concomitant]
     Dates: start: 20081114
  6. IBUPROFEN TABLETS [Concomitant]
  7. TYLENOL (CAPLET) [Concomitant]
  8. DAPSONE [Concomitant]
     Dosage: TOTAL DAILY DOSE: 100 MG
     Route: 048
  9. FERROUS SULFATE TAB [Concomitant]
     Dosage: TOTAL DAILY DOSE: 650 MG
     Route: 048
  10. PERCOCET [Concomitant]
  11. COUMADIN [Concomitant]
     Dosage: TOTAL DAILY DOSE: 2.5 MG
     Route: 048
  12. PEPCID [Concomitant]

REACTIONS (3)
  - PNEUMONIA [None]
  - RENAL FAILURE ACUTE [None]
  - SEPSIS [None]
